FAERS Safety Report 9178443 (Version 1)
Quarter: 2013Q1

REPORT INFORMATION
  Report Type: Spontaneous
  Country: GB (occurrence: GB)
  Receive Date: 20130321
  Receipt Date: 20130321
  Transmission Date: 20140127
  Serious: Yes (Other)
  Sender: FDA-Public Use
  Company Number: GB-009507513-1212GBR003337

PATIENT
  Age: 75 Year
  Sex: Female

DRUGS (1)
  1. ZISPIN SOLTAB [Suspect]
     Indication: DEPRESSION
     Dosage: 45 MG, QD
     Route: 048
     Dates: start: 2012

REACTIONS (3)
  - Ileostomy [Unknown]
  - Colitis ulcerative [Unknown]
  - Short-bowel syndrome [Unknown]
